FAERS Safety Report 7173140-4 (Version None)
Quarter: 2010Q4

REPORT INFORMATION
  Report Type: 
  Country: None (occurrence: None)
  Receive Date: 20101219
  Receipt Date: 20100222
  Transmission Date: 20110411
  Serious: No
  Sender: FDA-Public Use
  Company Number: US-AMGEN-KDL394455

PATIENT

DRUGS (3)
  1. ENBREL [Suspect]
     Indication: PSORIASIS
     Dosage: 50 MG, QWK
     Route: 058
  2. CYCLOSPORINE [Concomitant]
     Dosage: UNK UNK, UNK
  3. METHOTREXATE [Concomitant]

REACTIONS (2)
  - HEADACHE [None]
  - PSORIASIS [None]
